FAERS Safety Report 19601821 (Version 1)
Quarter: 2021Q3

REPORT INFORMATION
  Report Type: Spontaneous
  Country: DE (occurrence: DE)
  Receive Date: 20210723
  Receipt Date: 20210723
  Transmission Date: 20211014
  Serious: Yes (Hospitalization, Other)
  Sender: FDA-Public Use
  Company Number: DE-ACCORD-232759

PATIENT
  Age: 68 Year
  Sex: Male
  Weight: 70 kg

DRUGS (15)
  1. PEMETREXED. [Suspect]
     Active Substance: PEMETREXED
     Indication: PRODUCT USED FOR UNKNOWN INDICATION
     Dosage: REDUCED DOSE ACCORDING TO THE SCHEME, SOLUTION FOR INJECTION/INFUSION
     Route: 042
  2. OXYCODON COMP ? 1 A PHARMA [Concomitant]
     Dosage: 5/10 MG, 0?0?0?1, PROLONGED?RELEASE TABLET
     Route: 048
  3. FOLVERLAN [Concomitant]
     Active Substance: FOLIC ACID
     Dosage: 0.4 MG, 1?0?0?0, TABLET
     Route: 048
  4. OXYCODONE [Concomitant]
     Active Substance: OXYCODONE
     Dosage: 5 MG, IF NECESSARY, PROLONGED?RELEASE TABLETS
     Route: 048
  5. FERRO SANOL [Concomitant]
     Active Substance: FERROUS GLYCINE SULFATE
     Dosage: 40 MG, 1?0?1?0, COATED TABLETS
     Route: 048
  6. METOPROLOL. [Concomitant]
     Active Substance: METOPROLOL
     Dosage: 47.5 MG, 1?0?0?0, TABLET
     Route: 048
  7. VENLAFAXINE/VENLAFAXINE HYDROCHLORIDE [Concomitant]
     Active Substance: VENLAFAXINE HYDROCHLORIDE
     Dosage: 75 MG, 1?0?0?0, CAPSULE
     Route: 048
  8. NOVAMINSULFON 500?1A PHARMA [Concomitant]
     Dosage: 500 MG, 40?40?40?40, DROPS
     Route: 048
  9. MCP AL [Concomitant]
     Dosage: 10 MG, 1?0?1?0, TABLET
     Route: 048
  10. CISPLATIN. [Suspect]
     Active Substance: CISPLATIN
     Indication: PRODUCT USED FOR UNKNOWN INDICATION
     Dosage: ACCORDING TO THE SCHEME, SOLUTION FOR INJECTION/INFUSION
     Route: 042
  11. PANTOPRAZOLE [Concomitant]
     Active Substance: PANTOPRAZOLE
     Dosage: 20 MG, 1?0?1?0, TABLET
     Route: 048
  12. PREGABALIN. [Concomitant]
     Active Substance: PREGABALIN
     Dosage: 150 MG, 1?0?1?0, CAPSULE
     Route: 048
  13. ETORICOX?ABZ [Concomitant]
     Dosage: 60 MG, 0?1?0?0, TABLET
     Route: 048
  14. MIRTAZAPINE. [Concomitant]
     Active Substance: MIRTAZAPINE
     Dosage: 15 MG, 0?0?0?1, TABLET
     Route: 048
  15. OXYCODONE [Concomitant]
     Active Substance: OXYCODONE
     Dosage: 20 MG, 1?1?0?1, PROLONGED?RELEASE TABLET
     Route: 048

REACTIONS (6)
  - Diarrhoea [Unknown]
  - Asthenia [Unknown]
  - Decreased appetite [Unknown]
  - Haematochezia [Unknown]
  - General physical health deterioration [Unknown]
  - Nausea [Unknown]
